FAERS Safety Report 18607092 (Version 2)
Quarter: 2020Q4

REPORT INFORMATION
  Report Type: Spontaneous
  Country: US (occurrence: US)
  Receive Date: 20201211
  Receipt Date: 20201217
  Transmission Date: 20210114
  Serious: Yes (Other)
  Sender: FDA-Public Use
  Company Number: US-PFIZER INC-2020370461

PATIENT
  Age: 15 Year
  Sex: Male

DRUGS (1)
  1. XELJANZ [Suspect]
     Active Substance: TOFACITINIB CITRATE
     Indication: ALOPECIA AREATA
     Dosage: 5 MG

REACTIONS (6)
  - Product use in unapproved indication [Unknown]
  - Anxiety [Unknown]
  - Off label use [Unknown]
  - Depression [Unknown]
  - Social fear [Unknown]
  - Product use issue [Unknown]
